FAERS Safety Report 4736245-0 (Version None)
Quarter: 2005Q3

REPORT INFORMATION
  Report Type: 
  Country: None (occurrence: None)
  Receive Date: 20050804
  Receipt Date: 20050804
  Transmission Date: 20060218
  Serious: Yes (Death)
  Sender: FDA-Public Use
  Company Number: None

PATIENT
  Sex: Male
  Weight: 97.7 kg

DRUGS (4)
  1. INTERERFERON-ALPHA [Suspect]
     Indication: RENAL CELL CARCINOMA STAGE UNSPECIFIED
     Dosage: SEE IMAGE
     Dates: end: 20050627
  2. INTERERFERON-ALPHA [Suspect]
     Indication: RENAL CELL CARCINOMA STAGE UNSPECIFIED
     Dosage: SEE IMAGE
     Dates: start: 20050628
  3. HYDROCODON/APAP [Concomitant]
  4. MORPHINE SULFATE [Concomitant]

REACTIONS (3)
  - DISEASE PROGRESSION [None]
  - FATIGUE [None]
  - RESPIRATORY DISORDER [None]
